FAERS Safety Report 24120461 (Version 2)
Quarter: 2024Q3

REPORT INFORMATION
  Report Type: Spontaneous
  Country: CA (occurrence: CA)
  Receive Date: 20240722
  Receipt Date: 20240729
  Transmission Date: 20241017
  Serious: Yes (Hospitalization, Other)
  Sender: SANDOZ
  Company Number: CA-002147023-NVSC2024CA147349

PATIENT
  Age: 35 Year
  Sex: Female

DRUGS (4)
  1. CALCITONIN [Suspect]
     Active Substance: CALCITONIN
     Indication: Hypercalcaemia
     Dosage: UNK
     Route: 065
  2. CINACALCET [Suspect]
     Active Substance: CINACALCET
     Indication: Hyperparathyroidism
     Dosage: UNK
     Route: 065
  3. PAMIDRONATE DISODIUM [Suspect]
     Active Substance: PAMIDRONATE DISODIUM
     Indication: Hypercalcaemia
     Dosage: 60 MG
     Route: 065
  4. ZOLEDRONIC ACID [Suspect]
     Active Substance: ZOLEDRONIC ACID
     Indication: Hypercalcaemia
     Dosage: 4 MG
     Route: 065

REACTIONS (5)
  - Placental insufficiency [Unknown]
  - Foetal heart rate deceleration abnormality [Unknown]
  - Maternal exposure during pregnancy [Recovered/Resolved]
  - Therapeutic product ineffective [Unknown]
  - Drug ineffective [Recovered/Resolved]
